FAERS Safety Report 13638737 (Version 1)
Quarter: 2017Q2

REPORT INFORMATION
  Report Type: Spontaneous
  Country: JP (occurrence: JP)
  Receive Date: 20170609
  Receipt Date: 20170609
  Transmission Date: 20170830
  Serious: Yes (Death, Other)
  Sender: FDA-Public Use
  Company Number: JP-B.I. PHARMACEUTICALS,INC./RIDGEFIELD-2017-NB-003195

PATIENT
  Age: 7 Decade
  Sex: Male

DRUGS (1)
  1. GILOTRIF [Suspect]
     Active Substance: AFATINIB
     Indication: MUCOEPIDERMOID CARCINOMA
     Route: 065
     Dates: start: 20160224

REACTIONS (3)
  - Lung disorder [Unknown]
  - Malignant neoplasm progression [Unknown]
  - Death [Fatal]
